FAERS Safety Report 11226197 (Version 1)
Quarter: 2015Q2

REPORT INFORMATION
  Report Type: Spontaneous
  Country: IT (occurrence: IT)
  Receive Date: 20150629
  Receipt Date: 20150629
  Transmission Date: 20150821
  Serious: Yes (Hospitalization)
  Sender: FDA-Public Use
  Company Number: IT-BAYER-2015-367592

PATIENT
  Age: 83 Year
  Sex: Male

DRUGS (7)
  1. LUVION [Concomitant]
     Active Substance: CANRENONE
     Indication: OEDEMA DUE TO CARDIAC DISEASE
     Dosage: 1 UNIT DOSE, UNK
     Route: 048
     Dates: start: 20130516
  2. RAMIPRIL [RAMIPRIL] [Concomitant]
     Indication: HYPERTENSION
     Dosage: 2.5 MG, UNK
     Route: 048
     Dates: start: 20130516, end: 20150609
  3. CARDIOASPIRIN [Suspect]
     Active Substance: ASPIRIN
     Indication: THROMBOSIS PROPHYLAXIS
     Dosage: 1 DF, QD
     Route: 048
     Dates: start: 20130508
  4. BISOPROLOL FUMARATE. [Concomitant]
     Active Substance: BISOPROLOL FUMARATE
     Indication: VENTRICULAR ARRHYTHMIA
     Dosage: 1.25 MG, UNK
     Route: 048
     Dates: start: 20130508
  5. PANTORC [Concomitant]
     Active Substance: PANTOPRAZOLE SODIUM
     Indication: PROPHYLAXIS AGAINST GASTROINTESTINAL ULCER
     Dosage: 1 UNIT DOSE, UNK
     Route: 048
     Dates: start: 20130508
  6. PLAVIX [Suspect]
     Active Substance: CLOPIDOGREL BISULFATE
     Indication: THROMBOSIS PROPHYLAXIS
     Dosage: 1 UNIT DOSE, QD
     Route: 048
     Dates: start: 20130508, end: 20150529
  7. LASIX [Concomitant]
     Active Substance: FUROSEMIDE
     Indication: OEDEMA DUE TO CARDIAC DISEASE
     Dosage: 1 DF, UNK
     Route: 048
     Dates: start: 20130508

REACTIONS (1)
  - Haematuria [Recovering/Resolving]

NARRATIVE: CASE EVENT DATE: 20150529
